FAERS Safety Report 8420789-4 (Version None)
Quarter: 2012Q2

REPORT INFORMATION
  Report Type: 
  Country: None (occurrence: None)
  Receive Date: 20120608
  Receipt Date: 20120604
  Transmission Date: 20120825
  Serious: No
  Sender: FDA-Public Use
  Company Number: US-PFIZER INC-2012133720

PATIENT
  Sex: Male

DRUGS (2)
  1. DETROL [Suspect]
     Dosage: UNK
  2. TOVIAZ [Suspect]
     Dosage: 4 MG, UNK
     Dates: start: 20120501

REACTIONS (5)
  - FATIGUE [None]
  - BLOOD PRESSURE ABNORMAL [None]
  - EXPIRED DRUG ADMINISTERED [None]
  - VISUAL IMPAIRMENT [None]
  - DRUG INEFFECTIVE [None]
